FAERS Safety Report 5757753-X (Version None)
Quarter: 2008Q2

REPORT INFORMATION
  Report Type: 
  Country: None (occurrence: None)
  Receive Date: 20080529
  Receipt Date: 20080515
  Transmission Date: 20081010
  Serious: Yes (Life-Threatening, Hospitalization, Disabling)
  Sender: FDA-Public Use
  Company Number: 000915

PATIENT
  Age: 70 Year
  Sex: Male

DRUGS (1)
  1. PLETAL [Suspect]
     Dosage: 100 MG
     Route: 048
     Dates: start: 20071109, end: 20080408

REACTIONS (1)
  - ACUTE CORONARY SYNDROME [None]
